FAERS Safety Report 4873001-7 (Version None)
Quarter: 2005Q4

REPORT INFORMATION
  Report Type: 
  Country: None (occurrence: None)
  Receive Date: 20051201
  Receipt Date: 20050714
  Transmission Date: 20060501
  Serious: No
  Sender: FDA-Public Use
  Company Number: 2005PV000360

PATIENT
  Age: 67 Year
  Sex: Female
  Weight: 86.1834 kg

DRUGS (12)
  1. BYETTA [Suspect]
     Indication: DIABETES MELLITUS NON-INSULIN-DEPENDENT
     Dosage: 5 MCG;BID;SC
     Route: 058
     Dates: start: 20050703, end: 20050704
  2. BYETTA [Suspect]
     Indication: DIABETES MELLITUS NON-INSULIN-DEPENDENT
     Dosage: 5 MCG;BID;SC
     Route: 058
     Dates: start: 20050712
  3. METFORMIN [Concomitant]
  4. STARLIX [Concomitant]
  5. DIOVAN HCT [Concomitant]
  6. EXCEDRIN (MIGRAINE) [Concomitant]
  7. CELEBREX [Concomitant]
  8. VITAMINS [Concomitant]
  9. GLUCOSAMINE [Concomitant]
  10. CHONDROITIN A [Concomitant]
  11. MSM [Concomitant]
  12. DIOVAN [Concomitant]

REACTIONS (5)
  - ASTHENIA [None]
  - DECREASED APPETITE [None]
  - NAUSEA [None]
  - TREMOR [None]
  - VOMITING [None]
